FAERS Safety Report 5252819-5 (Version None)
Quarter: 2007Q1

REPORT INFORMATION
  Report Type: 
  Country: None (occurrence: None)
  Receive Date: 20070301
  Receipt Date: 20061208
  Transmission Date: 20070707
  Serious: No
  Sender: FDA-Public Use
  Company Number: US-GLAXOSMITHKLINE-A0630945A

PATIENT
  Age: 57 Year
  Sex: Male

DRUGS (16)
  1. LAMICTAL [Suspect]
     Indication: DRUG USE FOR UNKNOWN INDICATION
     Dosage: 375MG TWICE PER DAY
     Route: 048
     Dates: start: 20061026
  2. HALDOL [Concomitant]
  3. MILK OF MAGNESIA [Concomitant]
  4. MYLANTA [Concomitant]
  5. GLUCOPHAGE [Concomitant]
  6. RITALIN [Concomitant]
  7. PHENOBARBITAL TAB [Concomitant]
  8. SEROQUEL [Concomitant]
  9. ACETAMINOPHEN [Concomitant]
  10. DEXTROSE [Concomitant]
  11. CLONAZEPAM [Concomitant]
  12. CLONIDINE [Concomitant]
  13. CARDIZEM [Concomitant]
  14. LEXAPRO [Concomitant]
  15. GEMFIBROZIL [Concomitant]
  16. GLIPIZIDE [Concomitant]

REACTIONS (4)
  - ABASIA [None]
  - DRUG TOXICITY [None]
  - FALL [None]
  - HYPERSOMNIA [None]
